FAERS Safety Report 19619867 (Version 1)
Quarter: 2021Q3

REPORT INFORMATION
  Report Type: Spontaneous
  Country: US (occurrence: US)
  Receive Date: 20210728
  Receipt Date: 20210728
  Transmission Date: 20211014
  Serious: Yes (Hospitalization)
  Sender: FDA-Public Use
  Company Number: US-ROCHE-2668748

PATIENT
  Sex: Female

DRUGS (2)
  1. XELODA [Suspect]
     Active Substance: CAPECITABINE
     Indication: HAEMORRHAGE
     Route: 048
     Dates: start: 202008
  2. XELODA [Suspect]
     Active Substance: CAPECITABINE
     Indication: IRON DEFICIENCY ANAEMIA
     Route: 048
     Dates: start: 202008

REACTIONS (3)
  - Nausea [Unknown]
  - Dizziness [Unknown]
  - Diarrhoea [Unknown]
